FAERS Safety Report 6712506-0 (Version None)
Quarter: 2010Q2

REPORT INFORMATION
  Report Type: 
  Country: None (occurrence: None)
  Receive Date: 20100505
  Receipt Date: 20100505
  Transmission Date: 20101027
  Serious: No
  Sender: FDA-Public Use
  Company Number: None

PATIENT
  Sex: Female
  Weight: 54.4316 kg

DRUGS (1)
  1. DURAGESIC-100 [Suspect]
     Indication: PAIN
     Dosage: 100 92 DAYS TRANSDERMAL
     Route: 062

REACTIONS (2)
  - DRUG EFFECT DECREASED [None]
  - INADEQUATE ANALGESIA [None]
